FAERS Safety Report 18700059 (Version 2)
Quarter: 2021Q1

REPORT INFORMATION
  Report Type: Spontaneous
  Country: FR (occurrence: FR)
  Receive Date: 20210105
  Receipt Date: 20210121
  Transmission Date: 20210419
  Serious: Yes (Other)
  Sender: FDA-Public Use
  Company Number: FR-JNJFOC-20210102843

PATIENT
  Age: 14 Year
  Sex: Female
  Weight: 45.9 kg

DRUGS (3)
  1. IMUREL [AZATHIOPRINE] [Concomitant]
     Active Substance: AZATHIOPRINE
     Indication: CROHN^S DISEASE
  2. IMIGRANE [SUMATRIPTAN] [Concomitant]
     Indication: HEADACHE
     Dosage: LESS THAN ONCE A WEEK
  3. STELARA [Suspect]
     Active Substance: USTEKINUMAB
     Indication: CROHN^S DISEASE
     Route: 058
     Dates: start: 201907

REACTIONS (3)
  - Off label use [Unknown]
  - Hypophysitis [Not Recovered/Not Resolved]
  - Product use issue [Unknown]

NARRATIVE: CASE EVENT DATE: 201907
